FAERS Safety Report 4911818-0 (Version None)
Quarter: 2006Q1

REPORT INFORMATION
  Report Type: 
  Country: None (occurrence: None)
  Receive Date: 20060215
  Receipt Date: 20060111
  Transmission Date: 20060701
  Serious: Yes (Hospitalization)
  Sender: FDA-Public Use
  Company Number: JP-BOEHRINGER INGELHEIM PHARMACEUTICALS, INC.-2006-BP-00705NB

PATIENT
  Sex: Male
  Weight: 65.7 kg

DRUGS (12)
  1. MICARDIS [Suspect]
     Indication: HYPERTENSION
     Route: 048
     Dates: start: 20051220, end: 20051229
  2. PL (NON-PYRINE PREPARATION) [Suspect]
     Indication: NASOPHARYNGITIS
     Route: 048
     Dates: start: 20051107, end: 20051229
  3. CLARITHROMYCIN [Suspect]
     Indication: BRONCHITIS CHRONIC
     Route: 048
     Dates: start: 20050402
  4. NIVADIL [Concomitant]
     Indication: HYPERTENSION
     Route: 048
     Dates: start: 19960410
  5. THEO-SLOW (THEOPHYLLINE) [Concomitant]
     Indication: BRONCHITIS CHRONIC
     Route: 048
     Dates: start: 19980108
  6. LENDORMIN [Concomitant]
     Indication: INSOMNIA
     Route: 048
     Dates: start: 19980401
  7. MUCOSERUM [Concomitant]
     Indication: GASTRITIS
     Route: 048
     Dates: start: 20020814
  8. TOUGHMAC E [Concomitant]
     Indication: GASTRITIS
     Route: 048
     Dates: start: 20021122
  9. SELBEX [Concomitant]
     Indication: GASTRITIS
     Route: 048
     Dates: start: 20021122
  10. GASMOTIN [Concomitant]
     Indication: GASTRITIS
     Route: 048
     Dates: start: 20021122
  11. MAGNESIUM OXIDE [Concomitant]
     Indication: GASTRITIS
     Route: 048
     Dates: start: 20021122
  12. TALION (BEPOTASTINE BESILATE) [Concomitant]
     Indication: RHINITIS ALLERGIC
     Route: 048
     Dates: start: 20051118, end: 20051228

REACTIONS (1)
  - HEPATIC FUNCTION ABNORMAL [None]
